FAERS Safety Report 21612013 (Version 1)
Quarter: 2022Q4

REPORT INFORMATION
  Report Type: Report from Study
  Country: CA (occurrence: CA)
  Receive Date: 20221118
  Receipt Date: 20221118
  Transmission Date: 20230113
  Serious: Yes (Other)
  Sender: FDA-Public Use
  Company Number: CA-ABBVIE-4204153

PATIENT
  Sex: Female

DRUGS (1)
  1. HUMIRA [Suspect]
     Active Substance: ADALIMUMAB
     Indication: Rheumatoid arthritis
     Route: 058
     Dates: start: 20180719

REACTIONS (10)
  - Knee arthroplasty [Unknown]
  - Mobility decreased [Unknown]
  - Ankle arthroplasty [Unknown]
  - Tooth extraction [Unknown]
  - Sinus operation [Unknown]
  - Cataract [Unknown]
  - Asthenia [Unknown]
  - Balance disorder [Unknown]
  - Bone pain [Unknown]
  - Therapeutic product effect decreased [Unknown]
